FAERS Safety Report 9914899 (Version 1)
Quarter: 2014Q1

REPORT INFORMATION
  Report Type: Spontaneous
  Country: US (occurrence: US)
  Receive Date: 20140220
  Receipt Date: 20140220
  Transmission Date: 20141002
  Serious: No
  Sender: FDA-Public Use
  Company Number: US-PFIZER INC-2014049305

PATIENT
  Age: 76 Year
  Sex: Female
  Weight: 74.83 kg

DRUGS (2)
  1. ZOLOFT [Suspect]
     Indication: DEPRESSION
     Dosage: UNK
     Dates: start: 2013
  2. CELEBREX [Concomitant]
     Indication: OSTEOARTHRITIS
     Dosage: 200 MG, DAILY

REACTIONS (3)
  - Feeling abnormal [Unknown]
  - Dizziness [Unknown]
  - Vomiting [Unknown]
